FAERS Safety Report 18085866 (Version 1)
Quarter: 2020Q3

REPORT INFORMATION
  Report Type: Spontaneous
  Country: US (occurrence: US)
  Receive Date: 20200728
  Receipt Date: 20200728
  Transmission Date: 20201103
  Serious: Yes (Hospitalization)
  Sender: FDA-Public Use
  Company Number: None

PATIENT

DRUGS (1)
  1. CLOZAPINE. [Suspect]
     Active Substance: CLOZAPINE
     Route: 048

REACTIONS (5)
  - Pericardial effusion [None]
  - Pericardial fibrosis [None]
  - Tachycardia [None]
  - C-reactive protein abnormal [None]
  - Myocarditis [None]

NARRATIVE: CASE EVENT DATE: 20200225
